FAERS Safety Report 8111855-1 (Version None)
Quarter: 2012Q1

REPORT INFORMATION
  Report Type: 
  Country: None (occurrence: None)
  Receive Date: 20120203
  Receipt Date: 20120130
  Transmission Date: 20120608
  Serious: Yes (Hospitalization, Other)
  Sender: FDA-Public Use
  Company Number: US-PFIZER INC-2012025751

PATIENT
  Sex: Female
  Weight: 77.098 kg

DRUGS (3)
  1. XALKORI [Suspect]
     Indication: BLOOD ALKALINE PHOSPHATASE INCREASED
     Dosage: 250 MG, 2X/DAY
     Dates: start: 20111101, end: 20111219
  2. XALKORI [Suspect]
     Dosage: 250 MG, 2X/DAY
     Dates: start: 20120104, end: 20120111
  3. VICODIN [Concomitant]
     Indication: PAIN
     Dosage: 5/500 MG, AS NEEDED

REACTIONS (4)
  - HAEMOPTYSIS [None]
  - DYSPNOEA [None]
  - PERICARDIAL EFFUSION [None]
  - BLOOD BILIRUBIN INCREASED [None]
